FAERS Safety Report 22167648 (Version 1)
Quarter: 2023Q2

REPORT INFORMATION
  Report Type: Report from Study
  Country: US (occurrence: US)
  Receive Date: 20230403
  Receipt Date: 20230403
  Transmission Date: 20230722
  Serious: Yes (Other)
  Sender: FDA-Public Use
  Company Number: US-ABBVIE-4346129

PATIENT
  Age: 38 Year
  Sex: Female

DRUGS (1)
  1. HUMIRA [Suspect]
     Active Substance: ADALIMUMAB
     Indication: Rheumatoid arthritis
     Dosage: FORM STRENGTH :40 MILLIGRAM?CITRATE FREE
     Route: 058
     Dates: start: 20220326

REACTIONS (4)
  - Dyskinesia [Unknown]
  - Tendon disorder [Recovering/Resolving]
  - Ligament rupture [Unknown]
  - Inflammation [Unknown]

NARRATIVE: CASE EVENT DATE: 20220315
